FAERS Safety Report 22313141 (Version 1)
Quarter: 2023Q2

REPORT INFORMATION
  Report Type: Spontaneous
  Country: US (occurrence: None)
  Receive Date: 20230510
  Receipt Date: 20230510
  Transmission Date: 20230722
  Serious: Yes (Hospitalization)
  Sender: FDA-Public Use
  Company Number: None

PATIENT
  Sex: Male

DRUGS (1)
  1. ZARXIO [Suspect]
     Active Substance: FILGRASTIM-SNDZ
     Indication: Myelodysplastic syndrome with ringed sideroblasts
     Dosage: FREQUENCY : PER MONTH;?
     Route: 058
     Dates: start: 20230426

REACTIONS (3)
  - Anaemia [None]
  - Thrombocytopenia [None]
  - Neutropenia [None]
